FAERS Safety Report 10251556 (Version 1)
Quarter: 2014Q2

REPORT INFORMATION
  Report Type: Report from Study
  Country: FR (occurrence: FR)
  Receive Date: 20140623
  Receipt Date: 20140623
  Transmission Date: 20141212
  Serious: Yes (Hospitalization)
  Sender: FDA-Public Use
  Company Number: FR-JNJFOC-20140612816

PATIENT
  Age: 81 Year
  Sex: Female
  Weight: 43 kg

DRUGS (8)
  1. XARELTO [Suspect]
     Indication: THROMBOSIS PROPHYLAXIS
     Route: 048
     Dates: start: 20131021
  2. PARACETAMOL [Concomitant]
     Route: 065
     Dates: start: 20131201, end: 20131203
  3. PERINDOPRIL [Concomitant]
     Route: 048
     Dates: start: 20131021, end: 20131201
  4. DIFFU K [Concomitant]
     Route: 065
     Dates: start: 20131206, end: 20131212
  5. CEFTRIAXONE [Concomitant]
     Route: 065
     Dates: start: 20131201, end: 20131205
  6. FUMAFER [Concomitant]
     Route: 065
     Dates: start: 20131212
  7. INDAPAMIDE [Concomitant]
     Route: 048
  8. NEBILOX [Concomitant]
     Route: 048
     Dates: start: 20131021

REACTIONS (2)
  - Anaemia [Recovered/Resolved]
  - Hodgkin^s disease [Not Recovered/Not Resolved]
